FAERS Safety Report 7383161-4 (Version None)
Quarter: 2011Q1

REPORT INFORMATION
  Report Type: 
  Country: None (occurrence: None)
  Receive Date: 20110330
  Receipt Date: 20110321
  Transmission Date: 20110831
  Serious: Yes (Other)
  Sender: FDA-Public Use
  Company Number: US-ASTRAZENECA-2008UW27064

PATIENT
  Age: 70 Year
  Sex: Female
  Weight: 67.1 kg

DRUGS (5)
  1. CRESTOR [Suspect]
     Route: 048
     Dates: start: 20081116
  2. SYMBICORT [Concomitant]
  3. ZYRTEC [Concomitant]
  4. DILTIAZEM [Concomitant]
  5. LANOXIN [Concomitant]

REACTIONS (3)
  - COUGH [None]
  - EPISTAXIS [None]
  - RASH [None]
